FAERS Safety Report 21969993 (Version 1)
Quarter: 2023Q1

REPORT INFORMATION
  Report Type: Spontaneous
  Country: JP (occurrence: JP)
  Receive Date: 20230208
  Receipt Date: 20230208
  Transmission Date: 20230417
  Serious: Yes (Other)
  Sender: FDA-Public Use
  Company Number: JP-SUN PHARMACEUTICAL INDUSTRIES LTD-2023R1-377158

PATIENT
  Sex: Female

DRUGS (4)
  1. CARBIDOPA\LEVODOPA [Suspect]
     Active Substance: CARBIDOPA\LEVODOPA
     Indication: Parkinsonism
     Dosage: 600 MILLIGRAM, DAILY
     Route: 048
  2. CARBIDOPA\LEVODOPA [Suspect]
     Active Substance: CARBIDOPA\LEVODOPA
     Indication: Cerebellar ataxia
  3. LEVODOPA [Concomitant]
     Active Substance: LEVODOPA
     Indication: Parkinsonism
     Dosage: UNK (100 MG)
     Route: 042
  4. LEVODOPA [Concomitant]
     Active Substance: LEVODOPA
     Indication: Cerebellar ataxia

REACTIONS (1)
  - Drug resistance [Unknown]
